FAERS Safety Report 8269058-6 (Version None)
Quarter: 2012Q2

REPORT INFORMATION
  Report Type: 
  Country: None (occurrence: None)
  Receive Date: 20120409
  Receipt Date: 20120403
  Transmission Date: 20120825
  Serious: Yes (Other)
  Sender: FDA-Public Use
  Company Number: US-PFIZER INC-2012030189

PATIENT
  Sex: Female

DRUGS (1)
  1. VFEND [Suspect]
     Indication: ASPERGILLOSIS
     Dosage: UNK
     Dates: start: 20100101

REACTIONS (6)
  - RENAL FAILURE [None]
  - BLINDNESS [None]
  - DEPRESSION [None]
  - VISION BLURRED [None]
  - DENTAL CARIES [None]
  - IMPAIRED DRIVING ABILITY [None]
